FAERS Safety Report 5060637-6 (Version None)
Quarter: 2006Q2

REPORT INFORMATION
  Report Type: 
  Country: None (occurrence: None)
  Receive Date: 20060619
  Receipt Date: 20060619
  Transmission Date: 20061013
  Serious: Yes (Death)
  Sender: FDA-Public Use
  Company Number: None

PATIENT
  Age: 38 Year
  Sex: Male

DRUGS (1)
  1. HABITROL [Suspect]
     Indication: EX-SMOKER
     Dosage: 21 MG DAILY CUTANEOUS
     Route: 003
     Dates: start: 20060309, end: 20060408

REACTIONS (1)
  - DEATH [None]
